FAERS Safety Report 16921277 (Version 9)
Quarter: 2022Q1

REPORT INFORMATION
  Report Type: Spontaneous
  Country: US (occurrence: US)
  Receive Date: 20191015
  Receipt Date: 20220128
  Transmission Date: 20220423
  Serious: No
  Sender: FDA-Public Use
  Company Number: US-SA-2019SA282454

PATIENT
  Age: 12 Year
  Sex: Male
  Weight: 48.8 kg

DRUGS (9)
  1. FABRAZYME [Suspect]
     Active Substance: AGALSIDASE BETA
     Indication: Fabry^s disease
     Dosage: 45 MG, QOW
     Route: 041
     Dates: start: 201606, end: 2016
  2. FABRAZYME [Suspect]
     Active Substance: AGALSIDASE BETA
     Dosage: 45 MG, QOW
     Route: 041
     Dates: start: 20160914, end: 2019
  3. FABRAZYME [Suspect]
     Active Substance: AGALSIDASE BETA
     Dosage: 45 MG, QOW
     Route: 041
     Dates: start: 2019, end: 2019
  4. FABRAZYME [Suspect]
     Active Substance: AGALSIDASE BETA
     Dosage: 45 MG, QOW
     Route: 041
     Dates: end: 2020
  5. FABRAZYME [Suspect]
     Active Substance: AGALSIDASE BETA
     Dosage: 45 MG, QOW
     Route: 041
     Dates: start: 202002
  6. FABRAZYME [Suspect]
     Active Substance: AGALSIDASE BETA
     Dosage: (5 MG STRENGTH) 35 MG, QOW
     Route: 041
     Dates: start: 201606, end: 2016
  7. FABRAZYME [Suspect]
     Active Substance: AGALSIDASE BETA
     Dosage: 25 MG, QW
     Route: 041
  8. FABRAZYME [Suspect]
     Active Substance: AGALSIDASE BETA
     Dosage: 10 MG
     Route: 041
     Dates: end: 2016
  9. FABRAZYME [Suspect]
     Active Substance: AGALSIDASE BETA
     Dosage: 25 MG, QW (STRENGTH: 5 MG)
     Route: 042
     Dates: start: 20160914

REACTIONS (9)
  - COVID-19 [Unknown]
  - SARS-CoV-2 test positive [Unknown]
  - Ocular hyperaemia [Unknown]
  - Sneezing [Unknown]
  - Rhinorrhoea [Unknown]
  - Malaise [Unknown]
  - Product dose omission issue [Unknown]
  - Arthralgia [Unknown]
  - Inappropriate schedule of product administration [Unknown]

NARRATIVE: CASE EVENT DATE: 20160914
